FAERS Safety Report 6600450-9 (Version None)
Quarter: 2010Q1

REPORT INFORMATION
  Report Type: 
  Country: None (occurrence: None)
  Receive Date: 20100223
  Receipt Date: 20100223
  Transmission Date: 20100710
  Serious: Yes (Other)
  Sender: FDA-Public Use
  Company Number: None

PATIENT
  Sex: Female
  Weight: 17.2367 kg

DRUGS (1)
  1. AUGMENTIN '125' [Suspect]
     Indication: BRONCHITIS
     Dosage: 6ML BID PO
     Route: 048
     Dates: start: 20100207, end: 20100210

REACTIONS (4)
  - BURNING SENSATION [None]
  - PAIN [None]
  - RASH [None]
  - URTICARIA [None]
